FAERS Safety Report 5588534-8 (Version None)
Quarter: 2008Q1

REPORT INFORMATION
  Report Type: 
  Country: None (occurrence: None)
  Receive Date: 20080111
  Receipt Date: 20080107
  Transmission Date: 20080703
  Serious: Yes (Other)
  Sender: FDA-Public Use
  Company Number: BE-WYE-H02012608

PATIENT
  Age: 46 Year
  Sex: Male

DRUGS (6)
  1. RAPAMUNE [Suspect]
     Indication: PROPHYLAXIS AGAINST TRANSPLANT REJECTION
     Route: 065
     Dates: start: 20020801, end: 20060101
  2. CELLCEPT [Concomitant]
     Indication: IMMUNOSUPPRESSION
     Route: 065
     Dates: start: 20020801
  3. MEDROL [Concomitant]
     Indication: IMMUNOSUPPRESSION
     Route: 065
     Dates: start: 20020801, end: 20050101
  4. MEDROL [Concomitant]
     Route: 065
     Dates: start: 20050101, end: 20050101
  5. MEDROL [Concomitant]
     Dosage: DOSE AND FREQUENCY NOT SPECIFIED
     Route: 065
     Dates: start: 20050101
  6. MEDROL [Concomitant]
     Dosage: 2 TO 4 MG/DAILY
     Route: 065
     Dates: start: 20060101

REACTIONS (1)
  - COMPLEX REGIONAL PAIN SYNDROME [None]
